FAERS Safety Report 8534184-0 (Version None)
Quarter: 2012Q3

REPORT INFORMATION
  Report Type: 
  Country: None (occurrence: None)
  Receive Date: 20120724
  Receipt Date: 20120717
  Transmission Date: 20120928
  Serious: Yes (Death, Other)
  Sender: FDA-Public Use
  Company Number: US-BAYER-2012-041531

PATIENT
  Age: 65 Year
  Sex: Female
  Weight: 70.204 kg

DRUGS (9)
  1. NEXAVAR [Suspect]
     Indication: METASTATIC NEOPLASM
     Dosage: 200 MG, BID
     Route: 048
     Dates: start: 20120403
  2. NEXAVAR [Suspect]
     Indication: METASTASES TO LIVER
  3. OXYCONTIN [Concomitant]
  4. COMPAZINE [Concomitant]
  5. DULCOLAX [DOCUSATE SODIUM] [Concomitant]
  6. OXYCODONE HCL [Concomitant]
  7. SENNA-MINT WAF [Concomitant]
  8. AMLODIPINE BESYLATE AND BENAZEPRIL HCL [Concomitant]
     Dosage: 10, 20
  9. VICODIN [Concomitant]

REACTIONS (2)
  - PULMONARY OEDEMA [None]
  - HEPATIC NEOPLASM MALIGNANT [None]
